FAERS Safety Report 17471750 (Version 2)
Quarter: 2020Q1

REPORT INFORMATION
  Report Type: Spontaneous
  Country: US (occurrence: US)
  Receive Date: 20200228
  Receipt Date: 20200305
  Transmission Date: 20200409
  Serious: Yes (Hospitalization, Other)
  Sender: FDA-Public Use
  Company Number: US-EMD SERONO-9148016

PATIENT
  Age: 17 Year
  Sex: Male

DRUGS (4)
  1. SAIZEN [Suspect]
     Active Substance: SOMATROPIN
     Dosage: DOSE INCREASED
     Route: 058
  2. TESTOSTERONE. [Concomitant]
     Active Substance: TESTOSTERONE
     Indication: PRODUCT USED FOR UNKNOWN INDICATION
  3. STELARA [Concomitant]
     Active Substance: USTEKINUMAB
     Indication: CROHN^S DISEASE
  4. SAIZEN [Suspect]
     Active Substance: SOMATROPIN
     Indication: MUSCULOSKELETAL DISORDER
     Dosage: UNKNOWN DOSE
     Route: 058

REACTIONS (4)
  - Treatment noncompliance [Unknown]
  - Post procedural swelling [Unknown]
  - Artificial crown procedure [Unknown]
  - Injection site swelling [Unknown]

NARRATIVE: CASE EVENT DATE: 201910
